FAERS Safety Report 5609163-3 (Version None)
Quarter: 2008Q1

REPORT INFORMATION
  Report Type: 
  Country: None (occurrence: None)
  Receive Date: 20080131
  Receipt Date: 20080129
  Transmission Date: 20080703
  Serious: Yes (Disabling)
  Sender: FDA-Public Use
  Company Number: GB-TEVA-166942ISR

PATIENT
  Age: 62 Year
  Sex: Male

DRUGS (2)
  1. ATENOLOL [Suspect]
  2. INSULIN GLARGINE [Suspect]
     Route: 058
     Dates: start: 20070901, end: 20071001

REACTIONS (5)
  - ERYTHEMA [None]
  - IMPAIRED HEALING [None]
  - ITCHING SCAR [None]
  - PRURITUS [None]
  - URTICARIA [None]
